FAERS Safety Report 9054600 (Version 2)
Quarter: 2013Q2

REPORT INFORMATION
  Report Type: Spontaneous
  Country: US (occurrence: US)
  Receive Date: 20130208
  Receipt Date: 20130523
  Transmission Date: 20140414
  Serious: Yes (Death, Hospitalization, Other)
  Sender: FDA-Public Use
  Company Number: US-B.I. PHARMACEUTICALS,INC./RIDGEFIELD-2013-BI-03509BP

PATIENT
  Age: 84 Year
  Sex: Female
  Weight: 72.57 kg

DRUGS (13)
  1. PRADAXA [Suspect]
     Indication: ANTICOAGULANT THERAPY
     Dosage: 150 MG
     Route: 048
     Dates: start: 20110801, end: 20120321
  2. PRADAXA [Suspect]
     Indication: ATRIAL FIBRILLATION
  3. ASPIRIN [Concomitant]
     Dates: start: 2004, end: 20120327
  4. NORVASC [Concomitant]
     Dosage: 5 MG
     Route: 048
  5. CELEBREX [Concomitant]
     Dosage: 400 MG
     Route: 048
  6. CELEXA [Concomitant]
     Dosage: 20 MG
     Route: 048
  7. FISH OIL OMEGA 3 FATTY ACIDS [Concomitant]
     Dosage: 2 G
     Route: 048
  8. ZESTRIL [Concomitant]
     Dosage: 40 MG
     Route: 048
  9. AMBIEN [Concomitant]
     Dosage: 5 MG
     Route: 048
  10. COREG [Concomitant]
     Dosage: 25 MG
     Route: 048
  11. KLOR-CON [Concomitant]
     Dosage: 20 MEQ
     Route: 048
  12. LASIX [Concomitant]
     Dosage: 80 MG
     Route: 048
     Dates: start: 20120221
  13. ALDACTONE [Concomitant]
     Dosage: 25 MG
     Route: 048
     Dates: start: 20120221

REACTIONS (6)
  - Cardiac arrest [Fatal]
  - Rectal haemorrhage [Unknown]
  - Haemorrhagic anaemia [Unknown]
  - Coagulopathy [Unknown]
  - Renal failure acute [Unknown]
  - Hyperkalaemia [Unknown]
